FAERS Safety Report 6041283-4 (Version None)
Quarter: 2009Q1

REPORT INFORMATION
  Report Type: 
  Country: None (occurrence: None)
  Receive Date: 20090116
  Receipt Date: 20080926
  Transmission Date: 20090719
  Serious: Yes (Disabling)
  Sender: FDA-Public Use
  Company Number: US-BRISTOL-MYERS SQUIBB COMPANY-14349823

PATIENT
  Sex: Female

DRUGS (8)
  1. ABILIFY [Suspect]
     Indication: BIPOLAR DISORDER
     Dates: start: 20060101, end: 20071201
  2. CYMBALTA [Suspect]
  3. LISINOPRIL [Concomitant]
     Dosage: 1 DOSAGE FORM = 10 - 12.5 MG
  4. LIPITOR [Concomitant]
  5. ASPIRIN [Concomitant]
  6. ALPRAZOLAM [Concomitant]
     Dosage: 1 DOSAGE FORM = 0.5(UNITS NOT SPECIFIED), 1-2 QD PRN
  7. HYDROCHLOROTHIAZIDE [Concomitant]
  8. FLURBIPROFEN [Concomitant]

REACTIONS (1)
  - TARDIVE DYSKINESIA [None]
